FAERS Safety Report 10978593 (Version 3)
Quarter: 2015Q2

REPORT INFORMATION
  Report Type: Report from Study
  Country: JP (occurrence: JP)
  Receive Date: 20150402
  Receipt Date: 20150513
  Transmission Date: 20150821
  Serious: Yes (Life-Threatening)
  Sender: FDA-Public Use
  Company Number: JP-SA-2015SA039881

PATIENT
  Sex: Male

DRUGS (1)
  1. EVOLTRA [Suspect]
     Active Substance: CLOFARABINE
     Route: 042
     Dates: start: 20150325, end: 20150325

REACTIONS (3)
  - Electrocardiogram QT prolonged [Recovering/Resolving]
  - Tumour lysis syndrome [Unknown]
  - Renal disorder [Unknown]

NARRATIVE: CASE EVENT DATE: 20150326
